FAERS Safety Report 8915888 (Version 1)
Quarter: 2012Q4

REPORT INFORMATION
  Report Type: 
  Country: ES (occurrence: ES)
  Receive Date: 20121119
  Receipt Date: 20121119
  Transmission Date: 20130627
  Serious: Yes (Other)
  Sender: FDA-Public Use
  Company Number: ES-PFIZER INC-2012276774

PATIENT
  Age: 59 Year
  Sex: Female

DRUGS (2)
  1. LYRICA [Suspect]
     Indication: FIBROMYALGIA
     Dosage: 75 mg, 1x/day
     Route: 048
     Dates: start: 20121103, end: 20121105
  2. DOLQUINE [Concomitant]
     Dosage: 200 mg, 1x/day
     Dates: start: 20121103, end: 20121105

REACTIONS (3)
  - Stomatitis [Recovered/Resolved]
  - Swollen tongue [Recovered/Resolved]
  - Oral discomfort [Recovered/Resolved]
